FAERS Safety Report 24417472 (Version 1)
Quarter: 2024Q4

REPORT INFORMATION
  Report Type: Spontaneous
  Country: US (occurrence: US)
  Receive Date: 20241009
  Receipt Date: 20241009
  Transmission Date: 20250115
  Serious: Yes (Death, Hospitalization, Other)
  Sender: DR REDDYS
  Company Number: US-DRL-USA-LIT/USA/24/0014739

PATIENT
  Age: 78 Year
  Sex: Female

DRUGS (2)
  1. GEMCITABINE [Suspect]
     Active Substance: GEMCITABINE
     Indication: Sarcomatoid carcinoma of the lung
  2. DOCETAXEL [Suspect]
     Active Substance: DOCETAXEL
     Indication: Sarcomatoid carcinoma of the lung

REACTIONS (2)
  - Condition aggravated [Fatal]
  - Drug ineffective for unapproved indication [Fatal]
